FAERS Safety Report 19126430 (Version 2)
Quarter: 2021Q3

REPORT INFORMATION
  Report Type: Spontaneous
  Country: US (occurrence: US)
  Receive Date: 20210413
  Receipt Date: 20210714
  Transmission Date: 20211014
  Serious: No
  Sender: FDA-Public Use
  Company Number: NVSC2021US081989

PATIENT
  Sex: Female

DRUGS (2)
  1. COSENTYX [Suspect]
     Active Substance: SECUKINUMAB
     Indication: PSORIATIC ARTHROPATHY
     Dosage: 300 MG, QMO(28 DAYS )
     Route: 058
  2. COSENTYX [Suspect]
     Active Substance: SECUKINUMAB
     Dosage: 150 MG, QW2
     Route: 058

REACTIONS (6)
  - Fatigue [Unknown]
  - Oral herpes [Unknown]
  - Gait disturbance [Unknown]
  - Joint stiffness [Unknown]
  - Bronchitis [Unknown]
  - Arthralgia [Unknown]
